FAERS Safety Report 4891199-1 (Version None)
Quarter: 2006Q1

REPORT INFORMATION
  Report Type: 
  Country: None (occurrence: None)
  Receive Date: 20060125
  Receipt Date: 20060118
  Transmission Date: 20060701
  Serious: Yes (Other)
  Sender: FDA-Public Use
  Company Number: GB-GLAXOSMITHKLINE-B0406990A

PATIENT
  Age: 51 Year
  Sex: Male

DRUGS (2)
  1. SEROXAT [Suspect]
     Indication: STRESS
  2. ALCOHOL [Suspect]

REACTIONS (8)
  - AGGRESSION [None]
  - ALCOHOL POISONING [None]
  - CIRCULATORY COLLAPSE [None]
  - CONFUSIONAL STATE [None]
  - COPROLALIA [None]
  - CRYING [None]
  - OVERDOSE [None]
  - SCREAMING [None]
